FAERS Safety Report 18218161 (Version 4)
Quarter: 2021Q1

REPORT INFORMATION
  Report Type: Report from Study
  Country: CA (occurrence: CA)
  Receive Date: 20200901
  Receipt Date: 20210119
  Transmission Date: 20210419
  Serious: Yes (Hospitalization)
  Sender: FDA-Public Use
  Company Number: CA-GLAXOSMITHKLINE-CA2020AMR171996

PATIENT
  Sex: Female

DRUGS (4)
  1. MEPOLIZUMAB [Suspect]
     Active Substance: MEPOLIZUMAB
     Indication: ASTHMA
     Dosage: 100 MG, Z, 1 MONTH
     Route: 042
     Dates: start: 20200727
  2. PREDNISONE. [Suspect]
     Active Substance: PREDNISONE
     Indication: PRODUCT USED FOR UNKNOWN INDICATION
     Dosage: 35 MG
  3. PREDNISONE. [Suspect]
     Active Substance: PREDNISONE
     Dosage: 25 MG, Z
  4. PREDNISONE. [Suspect]
     Active Substance: PREDNISONE
     Dosage: 30 MG

REACTIONS (11)
  - Biopsy bone marrow [Unknown]
  - Dyspnoea [Unknown]
  - Pain [Unknown]
  - Nerve conduction studies [Unknown]
  - Cough [Recovering/Resolving]
  - Blood immunoglobulin E decreased [Unknown]
  - Arthralgia [Unknown]
  - Myalgia [Unknown]
  - Withdrawal syndrome [Unknown]
  - Speech disorder [Unknown]
  - Respiratory disorder [Recovering/Resolving]
